FAERS Safety Report 5271042-1 (Version None)
Quarter: 2007Q1

REPORT INFORMATION
  Report Type: 
  Country: None (occurrence: None)
  Receive Date: 20070321
  Receipt Date: 20070308
  Transmission Date: 20070707
  Serious: Yes (Hospitalization)
  Sender: FDA-Public Use
  Company Number: PHBS2007BE04460

PATIENT
  Age: 19 Year
  Sex: Male

DRUGS (4)
  1. CLOZAPINE [Suspect]
     Indication: SCHIZOPHRENIA
     Route: 065
  2. CLOZAPINE [Suspect]
     Dosage: 200 MG, TID
     Route: 065
  3. LAUDANUM [Concomitant]
  4. VALPROMIDE [Concomitant]

REACTIONS (7)
  - BLOOD CREATINE PHOSPHOKINASE INCREASED [None]
  - COLECTOMY [None]
  - COLONIC OBSTRUCTION [None]
  - COLOSTOMY [None]
  - NECROTISING COLITIS [None]
  - RENAL FAILURE [None]
  - SHOCK [None]
